FAERS Safety Report 6552508-0 (Version None)
Quarter: 2010Q1

REPORT INFORMATION
  Report Type: 
  Country: None (occurrence: None)
  Receive Date: 20100126
  Receipt Date: 20100115
  Transmission Date: 20100710
  Serious: Yes (Hospitalization)
  Sender: FDA-Public Use
  Company Number: US-BAXTER-2010BH001054

PATIENT
  Sex: Female

DRUGS (1)
  1. DIANEAL [Suspect]
     Indication: PERITONEAL DIALYSIS
     Route: 033

REACTIONS (5)
  - CHOLECYSTECTOMY [None]
  - FLUID OVERLOAD [None]
  - GALLBLADDER OPERATION [None]
  - HYPOTENSION [None]
  - LEG AMPUTATION [None]
